FAERS Safety Report 6861954-7 (Version None)
Quarter: 2010Q3

REPORT INFORMATION
  Report Type: 
  Country: None (occurrence: None)
  Receive Date: 20100720
  Receipt Date: 20100720
  Transmission Date: 20110219
  Serious: No
  Sender: FDA-Public Use
  Company Number: None

PATIENT
  Sex: Male
  Weight: 83.9154 kg

DRUGS (2)
  1. ARMOR THYROID [Suspect]
     Indication: HYPOTHYROIDISM
     Dosage: 30 MG ONCE/DAY ORAL 60 MG ONCE/DAY ORAL I HAVE BEEN ON SAME DOSE OF ARMOR THYROID SINCE 1999
     Route: 048
     Dates: start: 20090901, end: 20100501
  2. ARMOR THYROID [Suspect]
     Indication: HYPOTHYROIDISM
     Dosage: 30 MG ONCE/DAY ORAL 60 MG ONCE/DAY ORAL I HAVE BEEN ON SAME DOSE OF ARMOR THYROID SINCE 1999
     Route: 048
     Dates: start: 19990101

REACTIONS (7)
  - ALOPECIA [None]
  - DRY SKIN [None]
  - FATIGUE [None]
  - FEELING ABNORMAL [None]
  - FEELING COLD [None]
  - PRODUCT SUBSTITUTION ISSUE [None]
  - WEIGHT INCREASED [None]
